FAERS Safety Report 8514414-1 (Version None)
Quarter: 2012Q3

REPORT INFORMATION
  Report Type: 
  Country: None (occurrence: None)
  Receive Date: 20120717
  Receipt Date: 20120706
  Transmission Date: 20120928
  Serious: Yes (Hospitalization)
  Sender: FDA-Public Use
  Company Number: JP-VERTEX PHARMACEUTICALS INC.-AE-2012-007323

PATIENT
  Age: 67 Year
  Sex: Male

DRUGS (11)
  1. TELAVIC (TELAPREVIR) [Suspect]
     Indication: HEPATITIS C
     Route: 048
     Dates: start: 20120309, end: 20120513
  2. PEG-INTRON [Concomitant]
     Route: 058
     Dates: end: 20120509
  3. URSO 250 [Concomitant]
     Route: 048
  4. TAMSULOSIN HCL [Concomitant]
     Route: 048
  5. TANATRIL [Concomitant]
     Route: 048
  6. RIBAVIRIN [Concomitant]
     Route: 048
     Dates: start: 20120503, end: 20120513
  7. LANSOPRAZOLE [Concomitant]
     Route: 048
     Dates: end: 20120509
  8. RIBAVIRIN [Concomitant]
     Route: 048
     Dates: start: 20120309, end: 20120502
  9. PEG-INTRON [Concomitant]
     Route: 058
     Dates: start: 20120309
  10. PEG-INTRON [Concomitant]
     Route: 058
     Dates: start: 20120510, end: 20120513
  11. NORVASC [Concomitant]
     Route: 048

REACTIONS (6)
  - BLOOD URIC ACID INCREASED [None]
  - NAUSEA [None]
  - DIARRHOEA [None]
  - PLEURAL EFFUSION [None]
  - DECREASED APPETITE [None]
  - ABDOMINAL DISCOMFORT [None]
